FAERS Safety Report 8219166-0 (Version None)
Quarter: 2012Q1

REPORT INFORMATION
  Report Type: 
  Country: None (occurrence: None)
  Receive Date: 20120319
  Receipt Date: 20120314
  Transmission Date: 20120608
  Serious: No
  Sender: FDA-Public Use
  Company Number: US-PFIZER INC-2012067709

PATIENT
  Sex: Female
  Weight: 97.959 kg

DRUGS (2)
  1. PREMPRO [Suspect]
     Indication: PREMATURE MENOPAUSE
     Dosage: 0.45/1.5 MG, 1X/DAY
     Route: 048
     Dates: start: 20120310
  2. SEROQUEL [Concomitant]
     Indication: BIPOLAR DISORDER
     Dosage: UNK

REACTIONS (2)
  - OVARIAN DISORDER [None]
  - ADNEXA UTERI PAIN [None]
